FAERS Safety Report 21221388 (Version 1)
Quarter: 2022Q3

REPORT INFORMATION
  Report Type: Spontaneous
  Country: US (occurrence: None)
  Receive Date: 20220816
  Receipt Date: 20220816
  Transmission Date: 20221027
  Serious: No
  Sender: FDA-Public Use
  Company Number: None

PATIENT
  Age: 73 Year
  Sex: Female
  Weight: 66.6 kg

DRUGS (6)
  1. PAXLOVID [Suspect]
     Active Substance: NIRMATRELVIR\RITONAVIR
     Indication: COVID-19
     Dosage: FREQUENCY : TWICE A DAY;?
     Route: 048
     Dates: start: 20220807, end: 20220812
  2. SIMVASTATIN [Concomitant]
     Active Substance: SIMVASTATIN
  3. VITAMINS [Concomitant]
     Active Substance: VITAMINS
  4. CALCIUM [Concomitant]
     Active Substance: CALCIUM
  5. VITAMIN B12 [Concomitant]
     Active Substance: CYANOCOBALAMIN
  6. NIACIN [Concomitant]
     Active Substance: NIACIN

REACTIONS (3)
  - Pruritus [None]
  - Proctalgia [None]
  - Frequent bowel movements [None]

NARRATIVE: CASE EVENT DATE: 20220810
